FAERS Safety Report 6222039-6 (Version None)
Quarter: 2009Q2

REPORT INFORMATION
  Report Type: 
  Country: None (occurrence: None)
  Receive Date: 20090609
  Receipt Date: 20090528
  Transmission Date: 20091009
  Serious: Yes (Other)
  Sender: FDA-Public Use
  Company Number: 2009SP011537

PATIENT
  Age: 9 Year
  Sex: Female
  Weight: 27.4 kg

DRUGS (8)
  1. PEG-INTRON [Suspect]
     Indication: MALIGNANT MELANOMA
     Dosage: 10 MCG; QW; SC, 10 MCG; QW; SC,10 MCG; QW; SC
     Route: 058
     Dates: start: 20090413, end: 20090413
  2. PEG-INTRON [Suspect]
     Indication: MALIGNANT MELANOMA
     Dosage: 10 MCG; QW; SC, 10 MCG; QW; SC,10 MCG; QW; SC
     Route: 058
     Dates: start: 20090420, end: 20090420
  3. PEG-INTRON [Suspect]
     Indication: MALIGNANT MELANOMA
     Dosage: 10 MCG; QW; SC, 10 MCG; QW; SC,10 MCG; QW; SC
     Route: 058
     Dates: start: 20090427, end: 20090427
  4. IBUPROFEN [Concomitant]
  5. COLACE [Concomitant]
  6. MEDERMA [Concomitant]
  7. ACETAMINOPHEN [Concomitant]
  8. NORCO [Concomitant]

REACTIONS (6)
  - FATIGUE [None]
  - JOINT EFFUSION [None]
  - JOINT RANGE OF MOTION DECREASED [None]
  - JOINT SWELLING [None]
  - SYNOVITIS [None]
  - WEIGHT BEARING DIFFICULTY [None]
